FAERS Safety Report 12880906 (Version 1)
Quarter: 2016Q4

REPORT INFORMATION
  Report Type: Report from Study
  Country: None (occurrence: US)
  Receive Date: 20161025
  Receipt Date: 20161025
  Transmission Date: 20170207
  Serious: Yes (Other)
  Sender: FDA-Public Use
  Company Number: US-ABBVIE-16P-163-1760917-00

PATIENT
  Sex: Male

DRUGS (2)
  1. VENCLEXTA [Suspect]
     Active Substance: VENETOCLAX
     Indication: CHRONIC LYMPHOCYTIC LEUKAEMIA
     Route: 048
     Dates: start: 20160511
  2. IMBRUVICA [Concomitant]
     Active Substance: IBRUTINIB
     Indication: PRODUCT USED FOR UNKNOWN INDICATION
     Route: 048

REACTIONS (9)
  - Lymphadenopathy [Unknown]
  - Haemoglobin abnormal [Unknown]
  - White blood cell count abnormal [Unknown]
  - Hepatosplenomegaly [Unknown]
  - Haematocrit abnormal [Unknown]
  - Platelet count abnormal [Unknown]
  - Asthenia [Unknown]
  - Fatigue [Unknown]
  - Joint range of motion decreased [Unknown]
